FAERS Safety Report 5258220-2 (Version None)
Quarter: 2007Q1

REPORT INFORMATION
  Report Type: 
  Country: None (occurrence: None)
  Receive Date: 20061117
  Receipt Date: 20060331
  Transmission Date: 20070707
  Serious: Yes (Other)
  Sender: FDA-Public Use
  Company Number: US-JNJFOC-20060400260

PATIENT
  Age: 23 Year
  Sex: Female
  Weight: 44.9061 kg

DRUGS (2)
  1. LEVAQUIN [Suspect]
     Indication: CYSTITIS
     Dosage: 500 MG, 1 IN  1 DAY, ORAL
     Route: 048
     Dates: start: 20060322, end: 20060328
  2. BIRTH CONTROL SHOT (HORMONAL CONTRACEPTIVES FOR SYSTEMIC USE) [Concomitant]

REACTIONS (3)
  - ARTHRALGIA [None]
  - MUSCULOSKELETAL STIFFNESS [None]
  - PAIN IN EXTREMITY [None]
